FAERS Safety Report 10645640 (Version 2)
Quarter: 2014Q4

REPORT INFORMATION
  Report Type: Spontaneous
  Country: GB (occurrence: GB)
  Receive Date: 20141211
  Receipt Date: 20141215
  Transmission Date: 20150529
  Serious: Yes (Hospitalization)
  Sender: FDA-Public Use
  Company Number: GB-JNJFOC-20141201690

PATIENT
  Age: 70 Year
  Sex: Female

DRUGS (2)
  1. XEPLION [Suspect]
     Active Substance: PALIPERIDONE PALMITATE
     Indication: BIPOLAR DISORDER
     Route: 030
     Dates: start: 20140522, end: 20140724
  2. LAMOTRIGINE. [Concomitant]
     Active Substance: LAMOTRIGINE
     Indication: BIPOLAR I DISORDER
     Route: 065
     Dates: start: 20140109, end: 20140730

REACTIONS (3)
  - Bipolar disorder [Recovered/Resolved]
  - Refusal of treatment by patient [Unknown]
  - Product use issue [Unknown]

NARRATIVE: CASE EVENT DATE: 201407
